FAERS Safety Report 9828727 (Version 2)
Quarter: 2014Q1

REPORT INFORMATION
  Report Type: Spontaneous
  Country: JP (occurrence: JP)
  Receive Date: 20140117
  Receipt Date: 20140128
  Transmission Date: 20141002
  Serious: Yes (Hospitalization)
  Sender: FDA-Public Use
  Company Number: PHHY2014JP003425

PATIENT
  Age: 58 Year
  Sex: Male
  Weight: 50 kg

DRUGS (5)
  1. RIBAVIRIN [Suspect]
     Indication: CHRONIC HEPATITIS C
     Dosage: 600 MG, DAILY
     Dates: start: 20121016
  2. RIBAVIRIN [Suspect]
     Dates: start: 201301
  3. PEGINTERFERON ALFA-2B [Suspect]
     Indication: CHRONIC HEPATITIS C
     Dosage: 100 UG, PER WEEK
     Dates: start: 20121016
  4. PEGINTERFERON ALFA-2B [Suspect]
     Dates: start: 201301
  5. TELAPREVIR [Concomitant]
     Indication: CHRONIC HEPATITIS C
     Dosage: 1500 MG, DAILY
     Dates: start: 20121016

REACTIONS (7)
  - Hepatic amoebiasis [Recovered/Resolved]
  - Decreased appetite [Recovered/Resolved]
  - Pyrexia [Recovered/Resolved]
  - Abdominal tenderness [Recovered/Resolved]
  - Liver abscess [Recovered/Resolved]
  - Abdominal pain upper [Recovered/Resolved]
  - Abscess rupture [Recovered/Resolved]
